FAERS Safety Report 7122742-X (Version None)
Quarter: 2010Q4

REPORT INFORMATION
  Report Type: 
  Country: None (occurrence: None)
  Receive Date: 20101124
  Receipt Date: 20101115
  Transmission Date: 20110411
  Serious: No
  Sender: FDA-Public Use
  Company Number: US-PFIZER INC-2010148930

PATIENT
  Sex: Female
  Weight: 65.76 kg

DRUGS (1)
  1. XALATAN [Suspect]
     Indication: GLAUCOMA
     Dosage: UNK, DAILY
     Dates: start: 20090101

REACTIONS (1)
  - HEMICEPHALALGIA [None]
